FAERS Safety Report 7902727-3 (Version None)
Quarter: 2011Q4

REPORT INFORMATION
  Report Type: 
  Country: None (occurrence: None)
  Receive Date: 20111109
  Receipt Date: 20111104
  Transmission Date: 20120403
  Serious: Yes (Death, Hospitalization)
  Sender: FDA-Public Use
  Company Number: US-BRISTOL-MYERS SQUIBB COMPANY-15986383

PATIENT
  Age: 67 Year
  Sex: Male

DRUGS (2)
  1. YERVOY [Suspect]
     Indication: MALIGNANT MELANOMA
     Dosage: SECCOND DOSE RECIEVED ON 10AUG11.
     Route: 042
     Dates: start: 20110803
  2. ACETAMINOPHEN [Concomitant]
     Route: 048

REACTIONS (2)
  - PNEUMONIA [None]
  - PLEURAL EFFUSION [None]
